FAERS Safety Report 7109134-4 (Version None)
Quarter: 2010Q4

REPORT INFORMATION
  Report Type: 
  Country: None (occurrence: None)
  Receive Date: 20101117
  Receipt Date: 20101115
  Transmission Date: 20110411
  Serious: Yes (Hospitalization)
  Sender: FDA-Public Use
  Company Number: DE-PFIZER INC-2010149282

PATIENT
  Age: 33 Year
  Sex: Male

DRUGS (1)
  1. DOXYCYCLINE HYCLATE [Suspect]
     Indication: BRONCHITIS BACTERIAL
     Dosage: UNK

REACTIONS (8)
  - ACUTE HEPATIC FAILURE [None]
  - CHOLESTASIS [None]
  - HAEMODIALYSIS [None]
  - HEPATIC ENCEPHALOPATHY [None]
  - HEPATIC SIDEROSIS [None]
  - HEPATITIS [None]
  - LIVER TRANSPLANT [None]
  - RENAL FAILURE ACUTE [None]
